FAERS Safety Report 25495958 (Version 1)
Quarter: 2025Q2

REPORT INFORMATION
  Report Type: Report from Study
  Country: FR (occurrence: FR)
  Receive Date: 20250630
  Receipt Date: 20250630
  Transmission Date: 20250716
  Serious: Yes (Death, Hospitalization)
  Sender: MYLAN
  Company Number: FR-ADIENNEP-2019AD000586

PATIENT
  Age: 62 Year
  Sex: Female
  Weight: 93 kg

DRUGS (40)
  1. BUSULFAN [Suspect]
     Active Substance: BUSULFAN
     Indication: Allogenic stem cell transplantation
     Dates: start: 20190902, end: 20190903
  2. BUSULFAN [Suspect]
     Active Substance: BUSULFAN
     Route: 042
     Dates: start: 20190902, end: 20190903
  3. BUSULFAN [Suspect]
     Active Substance: BUSULFAN
     Route: 042
     Dates: start: 20190902, end: 20190903
  4. BUSULFAN [Suspect]
     Active Substance: BUSULFAN
     Dates: start: 20190902, end: 20190903
  5. THIOTEPA [Suspect]
     Active Substance: THIOTEPA
     Indication: Allogenic stem cell transplantation
     Dates: start: 20190831, end: 20190831
  6. THIOTEPA [Suspect]
     Active Substance: THIOTEPA
     Route: 042
     Dates: start: 20190831, end: 20190831
  7. THIOTEPA [Suspect]
     Active Substance: THIOTEPA
     Route: 042
     Dates: start: 20190831, end: 20190831
  8. THIOTEPA [Suspect]
     Active Substance: THIOTEPA
     Dates: start: 20190831, end: 20190831
  9. FLUDARABINE [Suspect]
     Active Substance: FLUDARABINE PHOSPHATE
     Indication: Allogenic stem cell transplantation
     Dates: start: 20190901, end: 20190904
  10. FLUDARABINE [Suspect]
     Active Substance: FLUDARABINE PHOSPHATE
     Route: 042
     Dates: start: 20190901, end: 20190904
  11. FLUDARABINE [Suspect]
     Active Substance: FLUDARABINE PHOSPHATE
     Route: 042
     Dates: start: 20190901, end: 20190904
  12. FLUDARABINE [Suspect]
     Active Substance: FLUDARABINE PHOSPHATE
     Dates: start: 20190901, end: 20190904
  13. CYCLOPHOSPHAMIDE [Suspect]
     Active Substance: CYCLOPHOSPHAMIDE
     Indication: Prophylaxis against graft versus host disease
     Dates: start: 20190909, end: 20190910
  14. CYCLOPHOSPHAMIDE [Suspect]
     Active Substance: CYCLOPHOSPHAMIDE
     Route: 042
     Dates: start: 20190909, end: 20190910
  15. CYCLOPHOSPHAMIDE [Suspect]
     Active Substance: CYCLOPHOSPHAMIDE
     Route: 042
     Dates: start: 20190909, end: 20190910
  16. CYCLOPHOSPHAMIDE [Suspect]
     Active Substance: CYCLOPHOSPHAMIDE
     Dates: start: 20190909, end: 20190910
  17. CYCLOSPORINE [Suspect]
     Active Substance: CYCLOSPORINE
     Indication: Prophylaxis against graft versus host disease
  18. CYCLOSPORINE [Suspect]
     Active Substance: CYCLOSPORINE
     Route: 042
  19. CYCLOSPORINE [Suspect]
     Active Substance: CYCLOSPORINE
     Route: 042
  20. CYCLOSPORINE [Suspect]
     Active Substance: CYCLOSPORINE
  21. CYCLOSPORINE [Suspect]
     Active Substance: CYCLOSPORINE
     Indication: Prophylaxis against graft versus host disease
  22. CYCLOSPORINE [Suspect]
     Active Substance: CYCLOSPORINE
     Route: 065
  23. CYCLOSPORINE [Suspect]
     Active Substance: CYCLOSPORINE
     Route: 065
  24. CYCLOSPORINE [Suspect]
     Active Substance: CYCLOSPORINE
  25. CELLCEPT [Suspect]
     Active Substance: MYCOPHENOLATE MOFETIL
     Indication: Product used for unknown indication
  26. CELLCEPT [Suspect]
     Active Substance: MYCOPHENOLATE MOFETIL
     Route: 065
  27. CELLCEPT [Suspect]
     Active Substance: MYCOPHENOLATE MOFETIL
     Route: 065
  28. CELLCEPT [Suspect]
     Active Substance: MYCOPHENOLATE MOFETIL
  29. CEFEPIME [Concomitant]
     Active Substance: CEFEPIME HYDROCHLORIDE
     Indication: Pyrexia
  30. CEFEPIME [Concomitant]
     Active Substance: CEFEPIME HYDROCHLORIDE
     Route: 065
  31. CEFEPIME [Concomitant]
     Active Substance: CEFEPIME HYDROCHLORIDE
     Route: 065
  32. CEFEPIME [Concomitant]
     Active Substance: CEFEPIME HYDROCHLORIDE
  33. AMIKACIN [Concomitant]
     Active Substance: AMIKACIN
     Indication: Pyrexia
  34. AMIKACIN [Concomitant]
     Active Substance: AMIKACIN
     Route: 065
  35. AMIKACIN [Concomitant]
     Active Substance: AMIKACIN
     Route: 065
  36. AMIKACIN [Concomitant]
     Active Substance: AMIKACIN
  37. MORPHINE [Concomitant]
     Active Substance: MORPHINE
  38. MORPHINE [Concomitant]
     Active Substance: MORPHINE
     Route: 065
  39. MORPHINE [Concomitant]
     Active Substance: MORPHINE
     Route: 065
  40. MORPHINE [Concomitant]
     Active Substance: MORPHINE

REACTIONS (5)
  - Acute kidney injury [Fatal]
  - Anuria [Fatal]
  - Hyperkalaemia [Fatal]
  - Hypovolaemic shock [Fatal]
  - Clostridium difficile colitis [Fatal]

NARRATIVE: CASE EVENT DATE: 20190922
